FAERS Safety Report 7060752-1 (Version None)
Quarter: 2010Q4

REPORT INFORMATION
  Report Type: 
  Country: None (occurrence: None)
  Receive Date: 20101025
  Receipt Date: 20101012
  Transmission Date: 20110411
  Serious: Yes (Other)
  Sender: FDA-Public Use
  Company Number: FR-MYLANLABS-2010S1019354

PATIENT
  Age: 30 Year
  Sex: Female

DRUGS (1)
  1. NIFEDIPINE [Suspect]
     Indication: PREMATURE LABOUR
     Route: 065

REACTIONS (2)
  - ANAPHYLACTIC REACTION [None]
  - DRUG EXPOSURE DURING PREGNANCY [None]
